FAERS Safety Report 5676704-X (Version None)
Quarter: 2008Q2

REPORT INFORMATION
  Report Type: 
  Country: None (occurrence: None)
  Receive Date: 20080310
  Receipt Date: 20070510
  Transmission Date: 20081010
  Serious: Yes (Other)
  Sender: FDA-Public Use
  Company Number: 2007NI0047

PATIENT
  Age: 50 Year
  Sex: Male
  Weight: 71.6683 kg

DRUGS (7)
  1. NITROLINGUAL PUMPSPRAY [Suspect]
     Indication: ANGINA PECTORIS
     Dosage: 2 SPRAYS, 2-3 MIN, SL
     Route: 060
  2. VYTORIN [Concomitant]
  3. COREG [Concomitant]
  4. LISINIPRIL [Concomitant]
  5. PLAVIX [Concomitant]
  6. ASACOL [Concomitant]
  7. ASPIRIN [Concomitant]

REACTIONS (1)
  - DRUG INEFFECTIVE [None]
